FAERS Safety Report 26145369 (Version 2)
Quarter: 2025Q4

REPORT INFORMATION
  Report Type: Spontaneous
  Country: EU (occurrence: EU)
  Receive Date: 20251211
  Receipt Date: 20251230
  Transmission Date: 20260117
  Serious: Yes (Other)
  Sender: TEVA
  Company Number: None

PATIENT
  Age: 65 Year
  Sex: Female
  Weight: 68 kg

DRUGS (1)
  1. PRAMIPEXOLE DIHYDROCHLORIDE [Suspect]
     Active Substance: PRAMIPEXOLE DIHYDROCHLORIDE
     Indication: Restless legs syndrome
     Dosage: 1.5 TABLETS 3 HOURS BEFORE BED, 0.25MG (0.18MG BASE)
     Route: 048
     Dates: start: 20240606, end: 20250601

REACTIONS (2)
  - Pain in extremity [Recovered/Resolved]
  - Product substitution issue [Unknown]
